FAERS Safety Report 8922954 (Version 1)
Quarter: 2012Q4

REPORT INFORMATION
  Report Type: Spontaneous
  Country: US (occurrence: None)
  Receive Date: 20121115
  Receipt Date: 20121115
  Transmission Date: 20130627
  Serious: Yes (Other)
  Sender: FDA-Public Use
  Company Number: FK201203333

PATIENT
  Age: 42 Year
  Sex: Female

DRUGS (2)
  1. MAGNESIUM SULFATE [Suspect]
     Indication: FLUID REPLACEMENT
     Route: 042
     Dates: start: 20121029, end: 20121029
  2. POTASSIUM (POTASSIUM) [Concomitant]

REACTIONS (2)
  - Pyrexia [None]
  - Drug eruption [None]
